FAERS Safety Report 5460199-5 (Version None)
Quarter: 2007Q3

REPORT INFORMATION
  Report Type: 
  Country: None (occurrence: None)
  Receive Date: 20070919
  Receipt Date: 20070626
  Transmission Date: 20080115
  Serious: Yes (Disabling)
  Sender: FDA-Public Use
  Company Number: US-ASTRAZENECA-2007UW13386

PATIENT
  Age: 22036 Day
  Sex: Female

DRUGS (9)
  1. SEROQUEL [Suspect]
     Indication: BIPOLAR II DISORDER
     Route: 048
     Dates: start: 20050926, end: 20060718
  2. SEROQUEL [Suspect]
     Indication: DEPRESSION
     Route: 048
     Dates: start: 20050926, end: 20060718
  3. LITHIUM [Concomitant]
     Indication: BIPOLAR II DISORDER
     Route: 048
     Dates: start: 20050512
  4. CYMBALTA [Concomitant]
     Indication: DEPRESSION
     Route: 048
     Dates: start: 20050215
  5. CYMBALTA [Concomitant]
     Route: 048
  6. AMBIEN [Concomitant]
  7. CLONAPINE [Concomitant]
  8. SYNTHROID [Concomitant]
  9. METHADONE HCL [Concomitant]

REACTIONS (1)
  - TARDIVE DYSKINESIA [None]
